FAERS Safety Report 17157994 (Version 1)
Quarter: 2019Q4

REPORT INFORMATION
  Report Type: Spontaneous
  Country: US (occurrence: US)
  Receive Date: 20191213
  Receipt Date: 20191213
  Transmission Date: 20200122
  Serious: Yes (Hospitalization)
  Sender: FDA-Public Use
  Company Number: None

PATIENT
  Age: 88 Year
  Sex: Female
  Weight: 58.1 kg

DRUGS (7)
  1. MEMANTINE/DONEPEZIL 7/10MG DAILY [Concomitant]
  2. ATORVASTATIN 10MG DAILY [Concomitant]
     Active Substance: ATORVASTATIN
  3. POTASSIUM 10MEQ DAILY [Concomitant]
  4. PAROXETINE 20MG DAILY [Concomitant]
  5. METOPROLOL 50MG DAILY [Concomitant]
  6. DILTIAZEM 90MG TID [Concomitant]
  7. RIVAROXABAN [Suspect]
     Active Substance: RIVAROXABAN
     Indication: ATRIAL FIBRILLATION
     Route: 048

REACTIONS (5)
  - Confusional state [None]
  - Vomiting [None]
  - Haemorrhage intracranial [None]
  - Hypertension [None]
  - Gait disturbance [None]

NARRATIVE: CASE EVENT DATE: 20150828
